FAERS Safety Report 6050413-X (Version None)
Quarter: 2009Q1

REPORT INFORMATION
  Report Type: 
  Country: None (occurrence: None)
  Receive Date: 20090121
  Receipt Date: 20090114
  Transmission Date: 20090719
  Serious: Yes (Other)
  Sender: FDA-Public Use
  Company Number: TPA2009A00051

PATIENT
  Sex: Female

DRUGS (3)
  1. ACTOS [Suspect]
     Dosage: PER ORAL
     Route: 048
  2. LIPITOR [Concomitant]
  3. GLIMEPIRIDE [Concomitant]

REACTIONS (1)
  - CARDIAC OPERATION [None]
